FAERS Safety Report 4975404-9 (Version None)
Quarter: 2006Q2

REPORT INFORMATION
  Report Type: 
  Country: None (occurrence: None)
  Receive Date: 20060418
  Receipt Date: 20051114
  Transmission Date: 20061013
  Serious: Yes (Hospitalization)
  Sender: FDA-Public Use
  Company Number: US-MERCK-0511USA02444

PATIENT
  Age: 79 Year
  Sex: Female

DRUGS (1)
  1. VIOXX [Suspect]
     Route: 048
     Dates: start: 20010501, end: 20021101

REACTIONS (9)
  - ARTHRALGIA [None]
  - ASTHMA [None]
  - CHANGE OF BOWEL HABIT [None]
  - CHEST PAIN [None]
  - CORONARY ARTERY DISEASE [None]
  - EPISCLERITIS [None]
  - JOINT INJURY [None]
  - OSTEOARTHRITIS [None]
  - URINARY TRACT INFECTION [None]
